FAERS Safety Report 24283943 (Version 3)
Quarter: 2024Q4

REPORT INFORMATION
  Report Type: Spontaneous
  Country: US (occurrence: US)
  Receive Date: 20240905
  Receipt Date: 20241022
  Transmission Date: 20250114
  Serious: No
  Sender: BOEHRINGER INGELHEIM
  Company Number: US-Komodo Health-a23aa000002wwqTAAQ

PATIENT
  Age: 61 Year
  Sex: Male

DRUGS (4)
  1. CYLTEZO [Suspect]
     Active Substance: ADALIMUMAB-ADBM
     Indication: Psoriatic arthropathy
     Route: 058
     Dates: start: 202408
  2. CYLTEZO [Suspect]
     Active Substance: ADALIMUMAB-ADBM
     Indication: Arthritis
  3. HUMIRA [Concomitant]
     Active Substance: ADALIMUMAB
     Indication: Psoriatic arthropathy
     Dates: start: 2016, end: 202408
  4. HUMIRA [Concomitant]
     Active Substance: ADALIMUMAB
     Indication: Arthritis

REACTIONS (4)
  - Pruritus [Not Recovered/Not Resolved]
  - Skin irritation [Not Recovered/Not Resolved]
  - Drug ineffective [Not Recovered/Not Resolved]
  - Wrong technique in product usage process [Unknown]

NARRATIVE: CASE EVENT DATE: 20240801
